FAERS Safety Report 5279981-2 (Version None)
Quarter: 2007Q1

REPORT INFORMATION
  Report Type: 
  Country: None (occurrence: None)
  Receive Date: 20070329
  Receipt Date: 20070320
  Transmission Date: 20070707
  Serious: Yes (Disabling, Other)
  Sender: FDA-Public Use
  Company Number: DE-JNJFOC-20070105541

PATIENT
  Age: 50 Year
  Sex: Female

DRUGS (8)
  1. TAVANIC [Suspect]
     Indication: COLITIS
     Route: 048
     Dates: start: 20070109, end: 20070114
  2. CLONT [Suspect]
     Indication: COLITIS
     Route: 048
     Dates: start: 20070109, end: 20070115
  3. SOLU-DECORTIN [Concomitant]
     Indication: CROHN'S DISEASE
     Route: 042
  4. SOLU-DECORTIN [Concomitant]
     Indication: COLITIS
     Route: 042
  5. PANTOZOL [Concomitant]
     Route: 042
  6. PANTOZOL [Concomitant]
     Route: 048
  7. NOREPINEPHRINE BITARTRATE [Concomitant]
     Route: 042
  8. STRUCTOKABIVEN [Concomitant]
     Route: 065

REACTIONS (1)
  - AMAUROSIS [None]
